FAERS Safety Report 5569861-7 (Version None)
Quarter: 2007Q4

REPORT INFORMATION
  Report Type: 
  Country: None (occurrence: None)
  Receive Date: 20071220
  Receipt Date: 20070524
  Transmission Date: 20080405
  Serious: No
  Sender: FDA-Public Use
  Company Number: US-ABBOTT-07P-163-0369839-00

PATIENT
  Sex: Female
  Weight: 53.572 kg

DRUGS (1)
  1. OMNICEF [Suspect]
     Indication: SINUSITIS
     Route: 048
     Dates: start: 20070503, end: 20070516

REACTIONS (3)
  - ABDOMINAL DISTENSION [None]
  - DYSPEPSIA [None]
  - INSOMNIA [None]
